FAERS Safety Report 20232294 (Version 1)
Quarter: 2021Q4

REPORT INFORMATION
  Report Type: Spontaneous
  Country: US (occurrence: None)
  Receive Date: 20211224
  Receipt Date: 20211224
  Transmission Date: 20220303
  Serious: Yes (Other)
  Sender: FDA-Public Use
  Company Number: None

PATIENT
  Age: 58 Year
  Sex: Male
  Weight: 72.9 kg

DRUGS (6)
  1. BLENREP [Suspect]
     Active Substance: BELANTAMAB MAFODOTIN-BLMF
     Indication: Plasma cell myeloma
     Dosage: OTHER QUANTITY : 1 253.82 ML;?OTHER FREQUENCY : EVERY 3WKS;?OTHER ROUTE : INFUSION 30MNTS;?
     Route: 050
     Dates: start: 20210922, end: 20211105
  2. LIPITOR [Concomitant]
     Active Substance: ATORVASTATIN CALCIUM
  3. ATENOLOL [Concomitant]
     Active Substance: ATENOLOL
  4. ACYCLOVIR [Concomitant]
     Active Substance: ACYCLOVIR
  5. Eyes Tears drop [Concomitant]
  6. VITAMIN D3 [Concomitant]
     Active Substance: CHOLECALCIFEROL

REACTIONS (3)
  - Blindness [None]
  - Therapy cessation [None]
  - Drug ineffective [None]

NARRATIVE: CASE EVENT DATE: 20211222
